FAERS Safety Report 7084443-6 (Version None)
Quarter: 2010Q4

REPORT INFORMATION
  Report Type: 
  Country: None (occurrence: None)
  Receive Date: 20101104
  Receipt Date: 20101025
  Transmission Date: 20110411
  Serious: Yes (Other)
  Sender: FDA-Public Use
  Company Number: DE-PFIZER INC-2010135170

PATIENT
  Age: 74 Year
  Sex: Female

DRUGS (3)
  1. LYRICA [Suspect]
     Indication: POLYNEUROPATHY
     Dosage: 25 MG DAILY
  2. LYRICA [Suspect]
     Dosage: 50 MG DAILY
  3. LYRICA [Suspect]
     Dosage: 75 MG, 1X/DAY

REACTIONS (4)
  - DIZZINESS [None]
  - HORDEOLUM [None]
  - VISION BLURRED [None]
  - VISUAL IMPAIRMENT [None]
